FAERS Safety Report 12416827 (Version 2)
Quarter: 2016Q2

REPORT INFORMATION
  Report Type: Spontaneous
  Country: JP (occurrence: JP)
  Receive Date: 20160530
  Receipt Date: 20160620
  Transmission Date: 20160815
  Serious: Yes (Hospitalization, Other)
  Sender: FDA-Public Use
  Company Number: JP-PFIZER INC-2016274696

PATIENT
  Age: 77 Year
  Sex: Male
  Weight: 54 kg

DRUGS (2)
  1. SUTENT [Suspect]
     Active Substance: SUNITINIB MALATE
     Indication: RENAL CELL CARCINOMA
     Dosage: 37.5 MG, 1X/DAY
     Route: 048
     Dates: start: 20160412, end: 20160415
  2. DAIKENCHUTO [Concomitant]
     Active Substance: HERBALS
     Indication: SUBILEUS
     Dosage: 2.5 G, 3X/DAY
     Route: 048
     Dates: start: 20160407, end: 20160415

REACTIONS (1)
  - Interstitial lung disease [Recovered/Resolved]

NARRATIVE: CASE EVENT DATE: 20160416
